FAERS Safety Report 23417041 (Version 1)
Quarter: 2024Q1

REPORT INFORMATION
  Report Type: Spontaneous
  Country: US (occurrence: US)
  Receive Date: 20240118
  Receipt Date: 20240118
  Transmission Date: 20240409
  Serious: Yes (Other)
  Sender: FDA-Public Use
  Company Number: US-TEVA-VS-3141779

PATIENT
  Age: 60 Year
  Weight: 92.53 kg

DRUGS (1)
  1. COPAXONE [Suspect]
     Active Substance: GLATIRAMER ACETATE
     Indication: Multiple sclerosis
     Route: 065

REACTIONS (4)
  - Multiple sclerosis [Unknown]
  - Wrong technique in device usage process [Unknown]
  - Gait inability [Unknown]
  - Musculoskeletal disorder [Unknown]
